FAERS Safety Report 4996194-X (Version None)
Quarter: 2006Q2

REPORT INFORMATION
  Report Type: 
  Country: None (occurrence: None)
  Receive Date: 20060504
  Receipt Date: 20060421
  Transmission Date: 20061013
  Serious: Yes (Death)
  Sender: FDA-Public Use
  Company Number: 200611148GDS

PATIENT
  Age: 70 Year
  Sex: Male
  Weight: 48 kg

DRUGS (8)
  1. SORAFENIB [Suspect]
     Indication: RENAL CELL CARCINOMA STAGE UNSPECIFIED
     Dosage: 400 MG, BID, ORAL
     Route: 048
     Dates: start: 20060301, end: 20060310
  2. DUROFERON DURETTER [Concomitant]
  3. NOVALUZID [Concomitant]
  4. MYCOSTATIN [Concomitant]
  5. NOVORAPID [Concomitant]
  6. IPREN [Concomitant]
  7. ACETAMINOPHEN [Concomitant]
  8. OXYCONTIN [Concomitant]

REACTIONS (2)
  - DEPRESSED LEVEL OF CONSCIOUSNESS [None]
  - UROSEPSIS [None]
